FAERS Safety Report 4776714-0 (Version None)
Quarter: 2005Q3

REPORT INFORMATION
  Report Type: 
  Country: None (occurrence: None)
  Receive Date: 20050923
  Receipt Date: 20050918
  Transmission Date: 20060218
  Serious: Yes (Death, Hospitalization, Other)
  Sender: FDA-Public Use
  Company Number: SE-JNJFOC-20050800469

PATIENT
  Age: 78 Year
  Sex: Female

DRUGS (8)
  1. INFLIXIMAB [Suspect]
     Route: 042
  2. INFLIXIMAB [Suspect]
     Indication: RHEUMATOID ARTHRITIS
     Route: 042
  3. METHOTREXATE [Concomitant]
     Indication: RHEUMATOID ARTHRITIS
  4. PREDNISONE [Concomitant]
  5. ALVEDON [Concomitant]
  6. CALICHEW [Concomitant]
  7. CALICHEW [Concomitant]
  8. ZOPICLONE [Concomitant]

REACTIONS (1)
  - DISSEMINATED TUBERCULOSIS [None]
